FAERS Safety Report 8447071-3 (Version None)
Quarter: 2012Q2

REPORT INFORMATION
  Report Type: 
  Country: None (occurrence: None)
  Receive Date: 20120619
  Receipt Date: 20120614
  Transmission Date: 20120825
  Serious: Yes (Other)
  Sender: FDA-Public Use
  Company Number: PHHY2012GB051074

PATIENT
  Age: 26 Year
  Sex: Female

DRUGS (3)
  1. ZOPICLONE [Suspect]
  2. DIAZEPAM [Suspect]
     Indication: TEMPORAL LOBE EPILEPSY
     Dosage: 5 MG, TID
  3. MORPHINE [Suspect]

REACTIONS (1)
  - MEMORY IMPAIRMENT [None]
